FAERS Safety Report 8187463-3 (Version None)
Quarter: 2012Q1

REPORT INFORMATION
  Report Type: 
  Country: None (occurrence: None)
  Receive Date: 20120306
  Receipt Date: 20120220
  Transmission Date: 20120608
  Serious: Yes (Other)
  Sender: FDA-Public Use
  Company Number: US-ROCHE-1041961

PATIENT
  Sex: Female

DRUGS (4)
  1. HERCEPTIN [Suspect]
     Indication: BREAST CANCER METASTATIC
     Route: 042
  2. DOCETAXEL [Suspect]
     Indication: BREAST CANCER METASTATIC
     Route: 042
  3. HERCEPTIN [Suspect]
     Route: 042
  4. GEFITINIB [Suspect]
     Indication: BREAST CANCER METASTATIC
     Route: 048

REACTIONS (19)
  - LYMPHOPENIA [None]
  - INFECTION [None]
  - DEHYDRATION [None]
  - ACTIVATED PARTIAL THROMBOPLASTIN TIME PROLONGED [None]
  - DIARRHOEA [None]
  - PAIN [None]
  - FATIGUE [None]
  - NEUTROPENIA [None]
  - DYSPNOEA [None]
  - HYPONATRAEMIA [None]
  - HYPOKALAEMIA [None]
  - MUCOSAL INFLAMMATION [None]
  - ALANINE AMINOTRANSFERASE INCREASED [None]
  - HYPOPHOSPHATAEMIA [None]
  - NEUROPATHY PERIPHERAL [None]
  - SKIN TOXICITY [None]
  - LEUKOPENIA [None]
  - NAUSEA [None]
  - DECREASED APPETITE [None]
